FAERS Safety Report 11227026 (Version 5)
Quarter: 2016Q2

REPORT INFORMATION
  Report Type: Report from Study
  Country: US (occurrence: US)
  Receive Date: 20150630
  Receipt Date: 20160610
  Transmission Date: 20160815
  Serious: Yes (Disabling, Other)
  Sender: FDA-Public Use
  Company Number: US-ROCHE-1600187

PATIENT
  Age: 95 Year
  Sex: Female

DRUGS (3)
  1. EXCEDRIN (UNITED STATES) [Concomitant]
     Indication: ARTHRITIS
     Route: 048
  2. LUCENTIS [Suspect]
     Active Substance: RANIBIZUMAB
     Indication: NEOVASCULAR AGE-RELATED MACULAR DEGENERATION
     Dosage: 11 REFILLS; LEFT EYE
     Route: 050
     Dates: start: 20150624
  3. AVASTIN [Suspect]
     Active Substance: BEVACIZUMAB
     Indication: AGE-RELATED MACULAR DEGENERATION
     Dosage: 11 REFILLS; LEFT EYE
     Route: 050
     Dates: start: 20100419, end: 20150615

REACTIONS (5)
  - Hypersensitivity [Unknown]
  - Eye infection [Unknown]
  - Drug ineffective [Unknown]
  - Blindness [Unknown]
  - Iridocyclitis [Recovered/Resolved]

NARRATIVE: CASE EVENT DATE: 20150615
